FAERS Safety Report 15398173 (Version 1)
Quarter: 2018Q3

REPORT INFORMATION
  Report Type: Spontaneous
  Country: FR (occurrence: FR)
  Receive Date: 20180918
  Receipt Date: 20180918
  Transmission Date: 20181010
  Serious: Yes (Hospitalization)
  Sender: FDA-Public Use
  Company Number: FR-PFIZER INC-2018372405

PATIENT
  Age: 58 Year
  Sex: Female
  Weight: 44.5 kg

DRUGS (11)
  1. ZYVOXID [Concomitant]
     Active Substance: LINEZOLID
     Dates: start: 20180713, end: 20180730
  2. HYDROXYZINE ARROW [Concomitant]
     Active Substance: HYDROXYZINE HYDROCHLORIDE
  3. CERUBIDINE [Suspect]
     Active Substance: DAUNORUBICIN HYDROCHLORIDE
     Indication: ACUTE MYELOID LEUKAEMIA
     Dosage: 60 MG/M2, UNK
     Route: 041
     Dates: start: 20180319, end: 20180321
  4. NEBIVOLOL SANDOZ [Concomitant]
     Active Substance: NEBIVOLOL
  5. MAGNESIUM SULFATE HEPTAHYDRATE [Concomitant]
     Active Substance: MAGNESIUM SULFATE HEPTAHYDRATE
  6. AMBISOME [Concomitant]
     Active Substance: AMPHOTERICIN B
     Dates: start: 20180727, end: 20180817
  7. RYDAPT [Suspect]
     Active Substance: MIDOSTAURIN
     Indication: ACUTE MYELOID LEUKAEMIA
     Dosage: 50 MG, DAILY, FROM DAY 8 UNTIL DAY 21
     Route: 048
     Dates: start: 20180327, end: 20180714
  8. MERONEM [Concomitant]
     Active Substance: MEROPENEM
     Dates: start: 20180726
  9. ARACYTINE [Suspect]
     Active Substance: CYTARABINE
     Indication: ACUTE MYELOID LEUKAEMIA
     Route: 041
     Dates: start: 20180319, end: 20180627
  10. CRESEMBA [Concomitant]
     Active Substance: ISAVUCONAZONIUM SULFATE
     Dates: start: 20180717, end: 20180727
  11. PANTOPRAZOLE MYLAN [Concomitant]
     Active Substance: PANTOPRAZOLE SODIUM

REACTIONS (2)
  - Cardiac failure [Not Recovered/Not Resolved]
  - Echocardiogram abnormal [Not Recovered/Not Resolved]

NARRATIVE: CASE EVENT DATE: 20180730
